FAERS Safety Report 23709577 (Version 3)
Quarter: 2024Q2

REPORT INFORMATION
  Report Type: Report from Study
  Country: BR (occurrence: BR)
  Receive Date: 20240404
  Receipt Date: 20240412
  Transmission Date: 20240715
  Serious: Yes (Other)
  Sender: FDA-Public Use
  Company Number: BR-JNJFOC-20240383373

PATIENT
  Age: 57 Year
  Sex: Female
  Weight: 80 kg

DRUGS (4)
  1. GOLIMUMAB [Suspect]
     Active Substance: GOLIMUMAB
     Indication: Axial spondyloarthritis
     Route: 058
     Dates: start: 20230417
  2. GOLIMUMAB [Suspect]
     Active Substance: GOLIMUMAB
  3. GOLIMUMAB [Suspect]
     Active Substance: GOLIMUMAB
  4. SIMPONI [Suspect]
     Active Substance: GOLIMUMAB
     Indication: Axial spondyloarthritis
     Route: 058
     Dates: start: 20230417

REACTIONS (6)
  - Rheumatoid arthritis [Unknown]
  - Axial spondyloarthritis [Unknown]
  - Fibromyalgia [Unknown]
  - Dengue fever [Recovered/Resolved]
  - Sleep disorder [Unknown]
  - Drug ineffective [Unknown]

NARRATIVE: CASE EVENT DATE: 20240308
